FAERS Safety Report 10008620 (Version 1)
Quarter: 2014Q1

REPORT INFORMATION
  Report Type: Spontaneous
  Country: US (occurrence: US)
  Receive Date: 20140312
  Receipt Date: 20140312
  Transmission Date: 20141002
  Serious: No
  Sender: FDA-Public Use
  Company Number: US-INCYTE CORPORATION-2012IN000147

PATIENT
  Age: 70 Year
  Sex: Male

DRUGS (6)
  1. JAKAFI [Suspect]
     Indication: MYELOFIBROSIS
     Dosage: 10 MG, BID
     Route: 048
     Dates: start: 20120116
  2. HYDROXYUREA [Concomitant]
     Dosage: 500 MG, QD
  3. LOSARTAN [Concomitant]
     Dosage: 100 MG, QD
  4. NORVASC [Concomitant]
     Dosage: 10 MG, QD
  5. ALLOPURINOL [Concomitant]
     Dosage: 300 MG, UNK
  6. ATIVAN [Concomitant]
     Dosage: 1 MG, QD

REACTIONS (1)
  - Weight decreased [None]
